FAERS Safety Report 5771037-5 (Version None)
Quarter: 2008Q2

REPORT INFORMATION
  Report Type: 
  Country: None (occurrence: None)
  Receive Date: 20080613
  Receipt Date: 20080519
  Transmission Date: 20081010
  Serious: No
  Sender: FDA-Public Use
  Company Number: US-ABBOTT-08P-163-0453533-00

PATIENT
  Sex: Female

DRUGS (3)
  1. HUMIRA [Suspect]
     Indication: CROHN'S DISEASE
     Dates: start: 20071101
  2. HUMIRA [Suspect]
     Indication: COLITIS
  3. PNEUMONIA VACCINE [Concomitant]
     Indication: PROPHYLAXIS
     Dates: start: 20080512, end: 20080512

REACTIONS (8)
  - COUGH [None]
  - CROHN'S DISEASE [None]
  - DRUG EFFECT DECREASED [None]
  - HAEMORRHAGE [None]
  - INFLUENZA [None]
  - INJECTION SITE PRURITUS [None]
  - INJECTION SITE REACTION [None]
  - UNEVALUABLE EVENT [None]
